FAERS Safety Report 6939523-X (Version None)
Quarter: 2010Q3

REPORT INFORMATION
  Report Type: 
  Country: None (occurrence: None)
  Receive Date: 20100819
  Receipt Date: 20100806
  Transmission Date: 20110219
  Serious: Yes (Hospitalization)
  Sender: FDA-Public Use
  Company Number: 8044299

PATIENT
  Sex: Female
  Weight: 94 kg

DRUGS (20)
  1. CERTOLIZUMAB PEGOL (CERTOLIZUMAB PEGOL) [Suspect]
     Indication: RHEUMATOID ARTHRITIS
     Dosage: SEE IMAGE
     Route: 058
     Dates: start: 20051220, end: 20060608
  2. CERTOLIZUMAB PEGOL (CERTOLIZUMAB PEGOL) [Suspect]
     Indication: RHEUMATOID ARTHRITIS
     Dosage: SEE IMAGE
     Route: 058
     Dates: start: 20060608, end: 20090311
  3. CERTOLIZUMAB PEGOL (CERTOLIZUMAB PEGOL) [Suspect]
     Indication: RHEUMATOID ARTHRITIS
     Dosage: SEE IMAGE
     Route: 058
     Dates: start: 20090326
  4. METHOTREXATE [Concomitant]
  5. FOLIC ACID [Concomitant]
  6. COXTRAL [Concomitant]
  7. LOKREN [Concomitant]
  8. LOZAP /00661201/ [Concomitant]
  9. UNKNOWN [Concomitant]
  10. HIPREX [Concomitant]
  11. FURON /00032601/ [Concomitant]
  12. LEVOTHYROXINE SODIUM [Concomitant]
  13. ANAVENOL [Concomitant]
  14. TRALGIT [Concomitant]
  15. DIPROPHOS [Concomitant]
  16. METHYLPREDNISOLON /00049601/ [Concomitant]
  17. MARCAINE /00330101/ [Concomitant]
  18. FLAMEXIN [Concomitant]
  19. CEFUROXIME AXETIL [Concomitant]
  20. RIVOTRIL [Concomitant]

REACTIONS (5)
  - ARTHRITIS [None]
  - CONDITION AGGRAVATED [None]
  - CYSTITIS [None]
  - JOINT DISLOCATION [None]
  - PITUITARY TUMOUR BENIGN [None]
